FAERS Safety Report 7552852 (Version 2)
Quarter: 2013Q3

REPORT INFORMATION
  Report Type: Spontaneous
  Country: US (occurrence: US)
  Receive Date: 20100825
  Receipt Date: 20130906
  Transmission Date: 20140515
  Serious: Yes (Other)
  Sender: FDA-Public Use
  Company Number: US-RANBAXY-2010US-37450

PATIENT
  Age: 22 Year
  Sex: Male

DRUGS (4)
  1. CARBAMAZEPINE [Suspect]
     Indication: CONVULSION
     Dosage: UNK
     Route: 065
  2. PHENOBARBITAL [Suspect]
     Indication: CONVULSION
     Dosage: UNK
     Route: 065
  3. VALPROIC ACID [Suspect]
     Indication: CONVULSION
     Dosage: UNK
     Route: 065
  4. ETHOSUXIMIDE [Suspect]
     Indication: CONVULSION
     Dosage: UNK
     Route: 065

REACTIONS (1)
  - Hepatic adenoma [Unknown]
